FAERS Safety Report 10034200 (Version 1)
Quarter: 2014Q1

REPORT INFORMATION
  Report Type: Spontaneous
  Country: US (occurrence: None)
  Receive Date: 20140324
  Receipt Date: 20140324
  Transmission Date: 20141002
  Serious: Yes (Disabling, Other)
  Sender: FDA-Public Use
  Company Number: None

PATIENT
  Age: 58 Year
  Sex: Female
  Weight: 85.73 kg

DRUGS (1)
  1. DEPAKOTE ER [Suspect]
     Indication: BIPOLAR DISORDER
     Dosage: ONE PILL TWICE DAILY TAKEN BY MOUTH
     Route: 048
     Dates: start: 20110105, end: 20140315

REACTIONS (3)
  - Fall [None]
  - Cerebral atrophy [None]
  - Incorrect drug administration duration [None]
